FAERS Safety Report 16821696 (Version 2)
Quarter: 2019Q4

REPORT INFORMATION
  Report Type: Spontaneous
  Country: US (occurrence: US)
  Receive Date: 20190918
  Receipt Date: 20191021
  Transmission Date: 20200122
  Serious: Yes (Other)
  Sender: FDA-Public Use
  Company Number: US-ALVOGEN-2019-ALVOGEN-101337

PATIENT
  Age: 63 Year

DRUGS (4)
  1. CLINDAMYCIN. [Suspect]
     Active Substance: CLINDAMYCIN
     Indication: SKIN IRRITATION
     Route: 061
     Dates: start: 201501
  2. CLEOCIN PHOSPHATE [Suspect]
     Active Substance: CLINDAMYCIN PHOSPHATE
     Indication: RASH
     Route: 061
  3. CLINDAMYCIN. [Suspect]
     Active Substance: CLINDAMYCIN
     Indication: RASH
     Route: 061
     Dates: start: 201501
  4. CLINDAMYCIN. [Suspect]
     Active Substance: CLINDAMYCIN
     Indication: ACNE
     Route: 061
     Dates: start: 201501

REACTIONS (3)
  - Suicidal ideation [Unknown]
  - Neoplasm malignant [Unknown]
  - Cerebrovascular accident [Unknown]
